FAERS Safety Report 9245829 (Version 1)
Quarter: 2013Q2

REPORT INFORMATION
  Report Type: Spontaneous
  Country: US (occurrence: US)
  Receive Date: 20130422
  Receipt Date: 20130422
  Transmission Date: 20140414
  Serious: No
  Sender: FDA-Public Use
  Company Number: US-BRISTOL-MYERS SQUIBB COMPANY-17458217

PATIENT
  Age: 93 Year
  Sex: Female

DRUGS (1)
  1. ELIQUIS [Suspect]
     Indication: HEART RATE IRREGULAR
     Dates: start: 20130302

REACTIONS (1)
  - Pruritus [Unknown]
